FAERS Safety Report 9414063 (Version 2)
Quarter: 2013Q3

REPORT INFORMATION
  Report Type: Spontaneous
  Country: US (occurrence: US)
  Receive Date: 20130723
  Receipt Date: 20130812
  Transmission Date: 20140515
  Serious: Yes (Life-Threatening)
  Sender: FDA-Public Use
  Company Number: US-ROCHE-1251853

PATIENT
  Age: 12 Year
  Sex: Male

DRUGS (3)
  1. XOLAIR [Suspect]
     Indication: ASTHMA
     Route: 065
  2. XOLAIR [Suspect]
     Indication: ANAPHYLACTIC REACTION
  3. EPINEPHRINE [Concomitant]
     Dosage: 8 EPI PENS
     Route: 065

REACTIONS (2)
  - Anaphylactic reaction [Unknown]
  - Asthma [Unknown]
